FAERS Safety Report 13813225 (Version 2)
Quarter: 2018Q2

REPORT INFORMATION
  Report Type: Spontaneous
  Country: US (occurrence: US)
  Receive Date: 20170729
  Receipt Date: 20180510
  Transmission Date: 20180711
  Serious: No
  Sender: FDA-Public Use
  Company Number: US-009507513-1707USA010092

PATIENT
  Sex: Female
  Weight: 60.77 kg

DRUGS (1)
  1. NEXPLANON [Suspect]
     Active Substance: ETONOGESTREL
     Dosage: INSERTED IN LEFT ARM
     Route: 059
     Dates: start: 201507

REACTIONS (8)
  - Complication of device removal [Recovered/Resolved]
  - Surgery [Unknown]
  - Menorrhagia [Unknown]
  - Limb discomfort [Unknown]
  - Menstruation irregular [Unknown]
  - Complication associated with device [Recovered/Resolved]
  - Contusion [Unknown]
  - Device deployment issue [Recovered/Resolved]

NARRATIVE: CASE EVENT DATE: 2015
